FAERS Safety Report 5221354-2 (Version None)
Quarter: 2007Q1

REPORT INFORMATION
  Report Type: 
  Country: None (occurrence: None)
  Receive Date: 20070126
  Receipt Date: 20070116
  Transmission Date: 20070707
  Serious: Yes (Other)
  Sender: FDA-Public Use
  Company Number: JP-PFIZER INC-2007003094

PATIENT
  Age: 85 Year
  Sex: Female

DRUGS (1)
  1. ZYVOX [Suspect]
     Route: 042

REACTIONS (1)
  - DELIRIUM [None]
